FAERS Safety Report 9751715 (Version 1)
Quarter: 2013Q4

REPORT INFORMATION
  Report Type: Spontaneous
  Country: DE (occurrence: DE)
  Receive Date: 20131213
  Receipt Date: 20131213
  Transmission Date: 20140711
  Serious: Yes (Hospitalization, Other)
  Sender: FDA-Public Use
  Company Number: DE-009507513-1312DEU003585

PATIENT
  Sex: Male

DRUGS (1)
  1. ISENTRESS [Suspect]
     Indication: HIV INFECTION
     Dosage: UNK
     Route: 048
     Dates: start: 201308

REACTIONS (3)
  - Gastrectomy [Unknown]
  - Gastric disorder [Unknown]
  - Viral load increased [Not Recovered/Not Resolved]
